FAERS Safety Report 9019095 (Version 10)
Quarter: 2014Q2

REPORT INFORMATION
  Report Type: Report from Study
  Country: RU (occurrence: RU)
  Receive Date: 20130118
  Receipt Date: 20140528
  Transmission Date: 20141212
  Serious: Yes (Hospitalization)
  Sender: FDA-Public Use
  Company Number: RU-VERTEX PHARMACEUTICALS INC.-2013-000804

PATIENT
  Age: 57 Year
  Sex: Female
  Weight: 67 kg

DRUGS (4)
  1. VX-950 (TELAPREVIR) [Suspect]
     Indication: HEPATITIS C
     Dosage: TABLET 2250 MG, TID
     Route: 048
     Dates: start: 20121203, end: 20130112
  2. PEGINTERFERON ALFA [Suspect]
     Indication: HEPATITIS C
     Dosage: 180 ?G, QW
     Route: 065
     Dates: start: 20121203, end: 20130111
  3. RIBAVIRIN [Suspect]
     Indication: HEPATITIS C
     Dosage: 600 MG, QD
     Route: 065
     Dates: start: 20130108, end: 20130112
  4. RIBAVIRIN [Suspect]
     Dosage: 600 MG, BID
     Route: 065
     Dates: start: 20121203

REACTIONS (1)
  - Pyelonephritis acute [Recovered/Resolved]
